FAERS Safety Report 16062649 (Version 1)
Quarter: 2019Q1

REPORT INFORMATION
  Report Type: Spontaneous
  Country: IT (occurrence: IT)
  Receive Date: 20190312
  Receipt Date: 20190312
  Transmission Date: 20190418
  Serious: Yes (Other)
  Sender: FDA-Public Use
  Company Number: IT-TEVA-2019-IT-1021754

PATIENT
  Age: 23 Year
  Sex: Male

DRUGS (2)
  1. AMIKACIN SULFATE. [Suspect]
     Active Substance: AMIKACIN SULFATE
     Indication: BACTERIAL INFECTION
     Dosage: 1 GRAM DAILY;
     Route: 042
     Dates: start: 20190217, end: 20190219
  2. CRESEMBA [Concomitant]
     Active Substance: ISAVUCONAZONIUM SULFATE
     Route: 042
     Dates: start: 20190217, end: 20190219

REACTIONS (2)
  - Renal failure [Not Recovered/Not Resolved]
  - Hypoacusis [Not Recovered/Not Resolved]
